FAERS Safety Report 20626778 (Version 3)
Quarter: 2022Q2

REPORT INFORMATION
  Report Type: Spontaneous
  Country: RU (occurrence: RU)
  Receive Date: 20220323
  Receipt Date: 20220422
  Transmission Date: 20220721
  Serious: Yes (Hospitalization, Other)
  Sender: FDA-Public Use
  Company Number: RU-Accord-258263

PATIENT
  Age: 78 Year
  Sex: Female
  Weight: 65 kg

DRUGS (4)
  1. CAPECITABINE [Suspect]
     Active Substance: CAPECITABINE
     Indication: Metastases to liver
     Route: 048
     Dates: start: 20210107, end: 20210128
  2. CYCLOPHOSPHAMIDE [Suspect]
     Active Substance: CYCLOPHOSPHAMIDE
     Indication: Metastases to liver
     Route: 048
     Dates: start: 20210107, end: 20210128
  3. BISOPROLOL [Concomitant]
     Active Substance: BISOPROLOL
     Indication: Hypertension
     Dates: end: 20210120
  4. ANASTROZOLE [Concomitant]
     Active Substance: ANASTROZOLE
     Indication: Hormone therapy
     Dates: start: 201903

REACTIONS (3)
  - Prinzmetal angina [Recovered/Resolved]
  - Cardiotoxicity [Recovered/Resolved]
  - Ventricular extrasystoles [Recovered/Resolved]

NARRATIVE: CASE EVENT DATE: 20210121
